FAERS Safety Report 11531059 (Version 1)
Quarter: 2015Q3

REPORT INFORMATION
  Report Type: Spontaneous
  Country: US (occurrence: US)
  Receive Date: 20150903
  Receipt Date: 20150903
  Transmission Date: 20151125
  Serious: Yes (Hospitalization, Other)
  Sender: FDA-Public Use
  Company Number: US-ELI_LILLY_AND_COMPANY-US201211001723

PATIENT
  Age: 27 Year
  Sex: Male

DRUGS (3)
  1. BUSPAR [Interacting]
     Active Substance: BUSPIRONE HYDROCHLORIDE
  2. CYMBALTA [Suspect]
     Active Substance: DULOXETINE HYDROCHLORIDE
     Dosage: 90 MG, UNK
  3. ULTRAM [Interacting]
     Active Substance: TRAMADOL HYDROCHLORIDE

REACTIONS (4)
  - Serotonin syndrome [Unknown]
  - Drug interaction [Unknown]
  - Renal impairment [Unknown]
  - Seizure [Unknown]
